FAERS Safety Report 11847943 (Version 1)
Quarter: 2015Q4

REPORT INFORMATION
  Report Type: Spontaneous
  Country: FR (occurrence: FR)
  Receive Date: 20151217
  Receipt Date: 20151217
  Transmission Date: 20160305
  Serious: Yes (Other)
  Sender: FDA-Public Use
  Company Number: FR-MEDTRONIC-1045630

PATIENT
  Age: 30 Year
  Sex: Female

DRUGS (1)
  1. BACLOFEN UNKNOWN [Suspect]
     Active Substance: BACLOFEN
     Indication: ALCOHOLISM
     Dates: end: 20140629

REACTIONS (2)
  - Abortion spontaneous [Recovered/Resolved]
  - Maternal exposure during delivery [Recovered/Resolved]

NARRATIVE: CASE EVENT DATE: 201406
